FAERS Safety Report 5879319-3 (Version None)
Quarter: 2008Q3

REPORT INFORMATION
  Report Type: 
  Country: None (occurrence: None)
  Receive Date: 20080910
  Receipt Date: 20080910
  Transmission Date: 20090109
  Serious: Yes (Hospitalization)
  Sender: FDA-Public Use
  Company Number: None

PATIENT
  Age: 54 Year
  Sex: Male
  Weight: 66.6788 kg

DRUGS (17)
  1. CARBOPLATIN [Suspect]
     Indication: HEAD AND NECK CANCER
     Dosage: QWKLY
     Dates: start: 20080715, end: 20080812
  2. TAXOL [Suspect]
     Indication: HEAD AND NECK CANCER
     Dosage: QWKLY
     Dates: start: 20080715, end: 20080812
  3. PANITUMUMAB 2.5MG/M2 [Suspect]
     Indication: HEAD AND NECK CANCER
     Dosage: QWKLY
     Dates: start: 20080715, end: 20080812
  4. ACYCLOVIR [Concomitant]
  5. ATIVAN [Concomitant]
  6. CHLORHEXIDINE GLUCONATE [Concomitant]
  7. COLACE [Concomitant]
  8. COMPAZINE [Concomitant]
  9. DECADRON SRC [Concomitant]
  10. DIFLUCAN [Concomitant]
  11. FENTANLY [Concomitant]
  12. MAGIC MOUTHWASH [Concomitant]
  13. NEUTRO-PHOS [Concomitant]
  14. PRILOSEC [Concomitant]
  15. OXYCODONE HCL [Concomitant]
  16. OXYCONTIN [Concomitant]
  17. SIMETHICONE [Concomitant]

REACTIONS (3)
  - ABSCESS [None]
  - DIVERTICULAR PERFORATION [None]
  - DIVERTICULUM [None]
